FAERS Safety Report 10184832 (Version 1)
Quarter: 2014Q2

REPORT INFORMATION
  Report Type: Spontaneous
  Country: US (occurrence: US)
  Receive Date: 20140521
  Receipt Date: 20140521
  Transmission Date: 20141212
  Serious: Yes (Hospitalization, Other)
  Sender: FDA-Public Use
  Company Number: US-ELI_LILLY_AND_COMPANY-US201405003171

PATIENT
  Sex: Female

DRUGS (3)
  1. CYMBALTA [Suspect]
     Indication: ARTHRITIS
     Dosage: 60 MG, QD
     Route: 065
  2. CYMBALTA [Suspect]
     Indication: BACK PAIN
  3. CYMBALTA [Suspect]
     Indication: PAIN

REACTIONS (2)
  - Parkinson^s disease [Unknown]
  - Fall [Unknown]
